FAERS Safety Report 6468553-X (Version None)
Quarter: 2009Q4

REPORT INFORMATION
  Report Type: 
  Country: None (occurrence: None)
  Receive Date: 20091203
  Receipt Date: 20091124
  Transmission Date: 20100525
  Serious: Yes (Other)
  Sender: FDA-Public Use
  Company Number: GB-ASTRAZENECA-2009SE28416

PATIENT
  Age: 22 Year
  Sex: Male

DRUGS (3)
  1. QUETIAPINE [Suspect]
     Route: 048
  2. SEMISODIUM VALPROATE [Suspect]
     Route: 048
  3. SERTRALINE HCL [Concomitant]

REACTIONS (1)
  - NEUTROPENIA [None]
